FAERS Safety Report 16556545 (Version 1)
Quarter: 2019Q3

REPORT INFORMATION
  Report Type: Spontaneous
  Country: US (occurrence: US)
  Receive Date: 20190711
  Receipt Date: 20190711
  Transmission Date: 20191004
  Serious: Yes (Other)
  Sender: FDA-Public Use
  Company Number: US-MALLINCKRODT-T201904781

PATIENT
  Sex: Female

DRUGS (3)
  1. H.P. ACTHAR [Suspect]
     Active Substance: CORTICOTROPIN
     Indication: SJOGREN^S SYNDROME
  2. H.P. ACTHAR [Suspect]
     Active Substance: CORTICOTROPIN
     Indication: NEUROTROPHIC KERATOPATHY
  3. H.P. ACTHAR [Suspect]
     Active Substance: CORTICOTROPIN
     Indication: DRY EYE
     Dosage: 80 UNITS (1 ML), TWICE WEEKLY
     Route: 058
     Dates: start: 201811

REACTIONS (2)
  - Ophthalmic herpes zoster [Unknown]
  - Visual impairment [Unknown]
